FAERS Safety Report 14843228 (Version 1)
Quarter: 2018Q2

REPORT INFORMATION
  Report Type: Spontaneous
  Country: BR (occurrence: BR)
  Receive Date: 20180503
  Receipt Date: 20180503
  Transmission Date: 20180711
  Serious: Yes (Other)
  Sender: FDA-Public Use
  Company Number: PHHY2018BR077309

PATIENT
  Age: 15 Year
  Weight: 55 kg

DRUGS (1)
  1. RITALIN [Suspect]
     Active Substance: METHYLPHENIDATE HYDROCHLORIDE
     Indication: ATTENTION DEFICIT/HYPERACTIVITY DISORDER
     Dosage: 30 MG, BID
     Route: 048
     Dates: start: 20040620, end: 20101124

REACTIONS (8)
  - Mental disorder [Unknown]
  - Myeloid leukaemia [Unknown]
  - Nervousness [Unknown]
  - Anxiety [Not Recovered/Not Resolved]
  - Bipolar disorder [Unknown]
  - Blood disorder [Unknown]
  - Iron deficiency [Unknown]
  - Anaemia [Unknown]

NARRATIVE: CASE EVENT DATE: 20140412
